FAERS Safety Report 25577592 (Version 1)
Quarter: 2025Q3

REPORT INFORMATION
  Report Type: Report from Study
  Country: JP (occurrence: JP)
  Receive Date: 20250718
  Receipt Date: 20250718
  Transmission Date: 20251020
  Serious: Yes (Other)
  Sender: PFIZER
  Company Number: JP-PFIZER INC-PV202500083610

PATIENT

DRUGS (1)
  1. PALBOCICLIB [Suspect]
     Active Substance: PALBOCICLIB
     Indication: Breast cancer recurrent

REACTIONS (1)
  - Hepatic function abnormal [Unknown]
